FAERS Safety Report 26128686 (Version 3)
Quarter: 2025Q4

REPORT INFORMATION
  Report Type: Spontaneous
  Country: US (occurrence: US)
  Receive Date: 20251208
  Receipt Date: 20251222
  Transmission Date: 20260117
  Serious: Yes (Other)
  Sender: ABBVIE
  Company Number: US-ABBVIE-6577297

PATIENT
  Age: 63 Year
  Sex: Female

DRUGS (8)
  1. BOTOX [Suspect]
     Active Substance: ONABOTULINUMTOXINA
     Indication: Migraine
     Dosage: TIME INTERVAL: AS NECESSARY
     Route: 065
  2. BRUKINSA [Suspect]
     Active Substance: ZANUBRUTINIB
     Indication: Waldenstrom^s macroglobulinaemia
     Dosage: 80 MG
     Route: 048
  3. BRUKINSA [Suspect]
     Active Substance: ZANUBRUTINIB
     Indication: Waldenstrom^s macroglobulinaemia
     Dosage: 80 MG
     Route: 048
  4. BRUKINSA [Suspect]
     Active Substance: ZANUBRUTINIB
     Indication: Waldenstrom^s macroglobulinaemia
     Dosage: 80 MG
     Route: 048
  5. BRUKINSA [Suspect]
     Active Substance: ZANUBRUTINIB
     Indication: Waldenstrom^s macroglobulinaemia
     Dosage: 80 MG
     Route: 048
  6. BRUKINSA [Suspect]
     Active Substance: ZANUBRUTINIB
     Indication: Waldenstrom^s macroglobulinaemia
     Dosage: 80 MG
     Route: 048
     Dates: start: 20250428
  7. BRUKINSA [Suspect]
     Active Substance: ZANUBRUTINIB
     Indication: Waldenstrom^s macroglobulinaemia
     Dosage: 80 MG
     Route: 048
  8. BRUKINSA [Suspect]
     Active Substance: ZANUBRUTINIB
     Indication: Waldenstrom^s macroglobulinaemia
     Dosage: 80 MG
     Route: 048

REACTIONS (21)
  - Surgery [Unknown]
  - Blood iron decreased [Unknown]
  - Red blood cell count decreased [Unknown]
  - Contusion [Unknown]
  - Affect lability [Unknown]
  - Headache [Unknown]
  - Weight increased [Unknown]
  - Pollakiuria [Unknown]
  - Fatigue [Unknown]
  - Increased tendency to bruise [Unknown]
  - Blister [Unknown]
  - Biopsy endometrium [Unknown]
  - Pruritus [Unknown]
  - Throat irritation [Unknown]
  - Melanocytic naevus [Unknown]
  - Feeling cold [Unknown]
  - Anxiety [Unknown]
  - Stress [Unknown]
  - Product leakage [Unknown]
  - Tri-iodothyronine decreased [Unknown]
  - Visual impairment [Unknown]
